FAERS Safety Report 7218321-6 (Version None)
Quarter: 2011Q1

REPORT INFORMATION
  Report Type: 
  Country: None (occurrence: None)
  Receive Date: 20110110
  Receipt Date: 20100203
  Transmission Date: 20110831
  Serious: No
  Sender: FDA-Public Use
  Company Number: US-BRISTOL-MYERS SQUIBB COMPANY-14967301

PATIENT
  Age: 63 Year
  Sex: Female
  Weight: 112 kg

DRUGS (1)
  1. DESYREL [Suspect]

REACTIONS (1)
  - DYSPNOEA [None]
